FAERS Safety Report 4972900-5 (Version None)
Quarter: 2006Q2

REPORT INFORMATION
  Report Type: 
  Country: None (occurrence: None)
  Receive Date: 20060410
  Receipt Date: 20060328
  Transmission Date: 20061013
  Serious: Yes (Other)
  Sender: FDA-Public Use
  Company Number: 2006044213

PATIENT
  Age: 50 Year
  Sex: Male
  Weight: 163.2949 kg

DRUGS (9)
  1. ZYVOX [Suspect]
     Indication: SKIN ULCER
     Dosage: INTRAVENOUS
     Route: 042
     Dates: start: 20051101
  2. ZYVOX [Suspect]
     Indication: SKIN ULCER
     Dosage: 1200 MG (600 MG, 2 IN 1 D), ORAL
     Route: 048
     Dates: start: 20060324
  3. ALL OTHER NON-THERAPEUTIC PRODUCTS (ALL OTHER NON-THERAPEUTIC PRODUCTS [Suspect]
     Indication: ILL-DEFINED DISORDER
     Dates: start: 20060328
  4. HUMALOG [Concomitant]
  5. LANTUS [Concomitant]
  6. LISINOPRIL [Concomitant]
  7. WARFARIN SODIUM [Concomitant]
  8. DIURETICS (DIURETICS) [Concomitant]
  9. LASIX [Concomitant]

REACTIONS (6)
  - DEPRESSION [None]
  - DIZZINESS [None]
  - LOSS OF CONSCIOUSNESS [None]
  - NEUROPATHY [None]
  - STAPHYLOCOCCAL INFECTION [None]
  - TREATMENT NONCOMPLIANCE [None]
